FAERS Safety Report 14905357 (Version 1)
Quarter: 2018Q2

REPORT INFORMATION
  Report Type: Spontaneous
  Country: US (occurrence: US)
  Receive Date: 20180517
  Receipt Date: 20180517
  Transmission Date: 20180711
  Serious: No
  Sender: FDA-Public Use
  Company Number: US-SA-2017SA265309

PATIENT
  Sex: Male

DRUGS (2)
  1. LANTUS SOLOSTAR [Suspect]
     Active Substance: INSULIN GLARGINE
     Dosage: DOSE:13 UNIT(S)
     Route: 051
     Dates: start: 2002
  2. SOLOSTAR [Suspect]
     Active Substance: DEVICE
     Dates: start: 2002

REACTIONS (2)
  - Pain in extremity [Unknown]
  - Device issue [Unknown]
